FAERS Safety Report 7430369-5 (Version None)
Quarter: 2011Q2

REPORT INFORMATION
  Report Type: 
  Country: None (occurrence: None)
  Receive Date: 20110421
  Receipt Date: 20100812
  Transmission Date: 20111010
  Serious: No
  Sender: FDA-Public Use
  Company Number: US-ASTRAZENECA-2010SE37876

PATIENT
  Age: 54 Year
  Sex: Female

DRUGS (1)
  1. METOPROLOL SUCCINATE [Suspect]
     Indication: LEFT VENTRICULAR END-DIASTOLIC PRESSURE
     Route: 048
     Dates: start: 20100801

REACTIONS (4)
  - ERUCTATION [None]
  - SUPRAVENTRICULAR EXTRASYSTOLES [None]
  - FLATULENCE [None]
  - LEFT VENTRICULAR END-DIASTOLIC PRESSURE INCREASED [None]
